FAERS Safety Report 5975894-9 (Version None)
Quarter: 2008Q4

REPORT INFORMATION
  Report Type: 
  Country: None (occurrence: None)
  Receive Date: 20081202
  Receipt Date: 20081124
  Transmission Date: 20090506
  Serious: Yes (Hospitalization)
  Sender: FDA-Public Use
  Company Number: US-GILEAD-2008-0019172

PATIENT
  Sex: Male
  Weight: 83.536 kg

DRUGS (6)
  1. LETAIRIS [Suspect]
     Indication: PULMONARY ARTERIAL HYPERTENSION
     Route: 048
     Dates: start: 20081105
  2. REVATIO [Concomitant]
  3. ALBUTEROL [Concomitant]
  4. FLOVENT [Concomitant]
  5. DILAUDID [Concomitant]
  6. FOLIC ACID [Concomitant]

REACTIONS (1)
  - ABDOMINAL PAIN [None]
